FAERS Safety Report 4397035-4 (Version None)
Quarter: 2004Q3

REPORT INFORMATION
  Report Type: 
  Country: None (occurrence: None)
  Receive Date: 20040708
  Receipt Date: 20040624
  Transmission Date: 20050211
  Serious: Yes (Hospitalization)
  Sender: FDA-Public Use
  Company Number: 2004PL000038

PATIENT
  Age: 18 Year
  Sex: Female

DRUGS (1)
  1. IMURAN [Suspect]
     Indication: CROHN'S DISEASE
     Dosage: 75 MG; DAILY; ORAL
     Route: 048

REACTIONS (17)
  - ABDOMINAL PAIN [None]
  - BLOOD CULTURE POSITIVE [None]
  - CHEST PAIN [None]
  - CHEST X-RAY ABNORMAL [None]
  - COMPUTERISED TOMOGRAM ABNORMAL [None]
  - HYPOXIA [None]
  - INTERSTITIAL LUNG DISEASE [None]
  - PNEUMONIA HERPES VIRAL [None]
  - PYREXIA [None]
  - RASH ERYTHEMATOUS [None]
  - RASH MACULO-PAPULAR [None]
  - RASH PRURITIC [None]
  - RASH VESICULAR [None]
  - RESPIRATORY RATE INCREASED [None]
  - SCAB [None]
  - SCAR [None]
  - SKIN LESION [None]
